FAERS Safety Report 14347035 (Version 1)
Quarter: 2018Q1

REPORT INFORMATION
  Report Type: Spontaneous
  Country: FR (occurrence: FR)
  Receive Date: 20180103
  Receipt Date: 20180103
  Transmission Date: 20180509
  Serious: Yes (Hospitalization)
  Sender: FDA-Public Use
  Company Number: FR-PFIZER INC-2017552276

PATIENT
  Age: 72 Year
  Sex: Male

DRUGS (7)
  1. SOLU-MEDROL [Suspect]
     Active Substance: METHYLPREDNISOLONE SODIUM SUCCINATE
     Indication: PYREXIA
     Dosage: 60 MG, 1X/DAY
     Route: 042
     Dates: start: 20171116, end: 20171118
  2. OFLOCET /00731801/ [Suspect]
     Active Substance: OFLOXACIN
     Indication: ESCHERICHIA INFECTION
     Dosage: 400 MG, 1X/DAY
     Route: 048
     Dates: start: 20171113, end: 20171121
  3. MIRTAZAPINE. [Concomitant]
     Active Substance: MIRTAZAPINE
  4. LEXOMIL [Concomitant]
     Active Substance: BROMAZEPAM
  5. XATRAL [Concomitant]
     Active Substance: ALFUZOSIN
  6. TRAMADOL. [Concomitant]
     Active Substance: TRAMADOL
  7. KARDEGIC [Concomitant]
     Active Substance: ASPIRIN DL-LYSINE

REACTIONS (2)
  - Aggression [Recovered/Resolved]
  - Confusional state [Recovered/Resolved]

NARRATIVE: CASE EVENT DATE: 20171118
